FAERS Safety Report 4443606-6 (Version None)
Quarter: 2004Q3

REPORT INFORMATION
  Report Type: 
  Country: None (occurrence: None)
  Receive Date: 20040908
  Receipt Date: 20040907
  Transmission Date: 20050211
  Serious: Yes (Hospitalization)
  Sender: FDA-Public Use
  Company Number: PHNU2004DE03152

PATIENT
  Sex: Female

DRUGS (2)
  1. GLEEVEC [Suspect]
     Indication: CHRONIC MYELOID LEUKAEMIA
     Dosage: 400 MG, QD
     Route: 048
     Dates: start: 20040301, end: 20040801
  2. GLEEVEC [Suspect]
     Dosage: 100 MG, TID
     Route: 048
     Dates: start: 20040801

REACTIONS (2)
  - FALL [None]
  - PELVIC FRACTURE [None]
